FAERS Safety Report 12476210 (Version 1)
Quarter: 2016Q2

REPORT INFORMATION
  Report Type: Spontaneous
  Country: US (occurrence: US)
  Receive Date: 20160617
  Receipt Date: 20160617
  Transmission Date: 20160815
  Serious: No
  Sender: FDA-Public Use
  Company Number: US-PFIZER INC-2016289812

PATIENT
  Age: 66 Year
  Sex: Male
  Weight: 80.74 kg

DRUGS (6)
  1. ADVIL [Suspect]
     Active Substance: IBUPROFEN
     Dosage: 400 MG, 2X/DAY
  2. ALLOPURINOL. [Concomitant]
     Active Substance: ALLOPURINOL
     Indication: GOUT
     Dosage: 200 MG, DAILY (TWO 100MG TABLETS BY MOUTH DAILY)
     Route: 048
     Dates: start: 201605
  3. ADVIL [Suspect]
     Active Substance: IBUPROFEN
     Indication: SWELLING
     Dosage: 600 MG, 2X/DAY (200MG THREE TABLETS IN THE MORNING AND THREE TABLETS IN THE EVENING)
     Dates: start: 201601
  4. ADVIL [Suspect]
     Active Substance: IBUPROFEN
     Dosage: 2 DF, 1X/DAY (TWO TABLETS AT BEDTIME)
     Dates: start: 201603
  5. ADVIL [Suspect]
     Active Substance: IBUPROFEN
     Dosage: 400 MG, DAILY (2 200MG TABLETS DAILY)
  6. ADVIL [Suspect]
     Active Substance: IBUPROFEN
     Indication: PAIN
     Dosage: 400 MG, 1X/DAY (TWO 200MG TABLETS BY MOUTH AT BEDTIME)
     Route: 048
     Dates: start: 201601

REACTIONS (6)
  - Renal disorder [Not Recovered/Not Resolved]
  - Renal pain [Unknown]
  - Myalgia [Not Recovered/Not Resolved]
  - Disease recurrence [Not Recovered/Not Resolved]
  - Product use issue [Unknown]
  - Back pain [Not Recovered/Not Resolved]

NARRATIVE: CASE EVENT DATE: 20160527
